FAERS Safety Report 11027602 (Version 2)
Quarter: 2015Q2

REPORT INFORMATION
  Report Type: Spontaneous
  Country: US (occurrence: US)
  Receive Date: 20150414
  Receipt Date: 20150415
  Transmission Date: 20150821
  Serious: No
  Sender: FDA-Public Use
  Company Number: US-ELI_LILLY_AND_COMPANY-US201504002905

PATIENT
  Sex: Male
  Weight: 104 kg

DRUGS (11)
  1. VIAGRA [Concomitant]
     Active Substance: SILDENAFIL CITRATE
     Dosage: UNK
     Dates: start: 20150405
  2. LYRICA [Concomitant]
     Active Substance: PREGABALIN
     Indication: NEUROPATHY PERIPHERAL
  3. DULOXETINE [Concomitant]
     Active Substance: DULOXETINE
     Indication: DEPRESSION
     Dosage: 60 MG, UNK
     Dates: start: 201411
  4. XARELTO [Concomitant]
     Active Substance: RIVAROXABAN
     Indication: CARDIAC ABLATION
     Dosage: 20 MG, QD
     Dates: start: 2012
  5. CIALIS [Suspect]
     Active Substance: TADALAFIL
     Indication: PRODUCT USED FOR UNKNOWN INDICATION
     Dosage: 20 MG, UNK
     Route: 065
     Dates: start: 20150324
  6. OXYCODONE [Concomitant]
     Active Substance: OXYCODONE
     Indication: DEPRESSION
     Dosage: 15 MG, TID
     Dates: start: 201411
  7. VALIUM [Concomitant]
     Active Substance: DIAZEPAM
     Dosage: 5 MG, QD
     Dates: start: 2013
  8. PROBENECID. [Concomitant]
     Active Substance: PROBENECID
     Indication: GOUT
     Dosage: 500 MG, BID
     Dates: start: 2012
  9. SULFASALAZINA [Concomitant]
     Indication: CROHN^S DISEASE
     Dosage: 500 MG, BID
     Route: 065
     Dates: start: 2011
  10. FLECAINIDE [Concomitant]
     Active Substance: FLECAINIDE
     Indication: CARDIAC DISORDER
     Dosage: 100 MG, BID
     Dates: start: 2013
  11. LYRICA [Concomitant]
     Active Substance: PREGABALIN
     Indication: FIBROMYALGIA
     Dosage: 50 MG, TID
     Dates: start: 201411

REACTIONS (1)
  - Drug ineffective [Unknown]
